FAERS Safety Report 5364342-8 (Version None)
Quarter: 2007Q2

REPORT INFORMATION
  Report Type: 
  Country: None (occurrence: None)
  Receive Date: 20070618
  Receipt Date: 20070605
  Transmission Date: 20071010
  Serious: Yes (Death, Hospitalization)
  Sender: FDA-Public Use
  Company Number: GXKR2007GB05001

PATIENT
  Age: 21 Year
  Sex: Male

DRUGS (2)
  1. ACETAMINOPHEN [Suspect]
     Dosage: OVERDOSE
  2. ALCOHOL (ETHANOL) [Suspect]

REACTIONS (6)
  - ACUTE HEPATIC FAILURE [None]
  - CONTINUOUS HAEMODIAFILTRATION [None]
  - DRUG INTERACTION [None]
  - HEPATIC ENCEPHALOPATHY [None]
  - OVERDOSE [None]
  - RENAL FAILURE ACUTE [None]
